FAERS Safety Report 8831725 (Version 4)
Quarter: 2013Q1

REPORT INFORMATION
  Report Type: Spontaneous
  Country: US (occurrence: US)
  Receive Date: 20121009
  Receipt Date: 20130220
  Transmission Date: 20140127
  Serious: No
  Sender: FDA-Public Use
  Company Number: US-009507513-1210USA002031

PATIENT
  Sex: Male

DRUGS (1)
  1. COPPERTONE WATER BABIES QUICK COVER LOTION SPRAY SPF-50 [Suspect]

REACTIONS (3)
  - Chemical injury [Recovered/Resolved]
  - Swelling [Recovered/Resolved]
  - Erythema [Recovered/Resolved]
